FAERS Safety Report 5194296-9 (Version None)
Quarter: 2006Q4

REPORT INFORMATION
  Report Type: 
  Country: None (occurrence: None)
  Receive Date: 20061228
  Receipt Date: 20061102
  Transmission Date: 20070319
  Serious: Yes (Other)
  Sender: FDA-Public Use
  Company Number: JP-PFIZER INC-2006133665

PATIENT
  Sex: Male

DRUGS (3)
  1. NORVASC [Suspect]
     Route: 048
  2. MICARDIS [Suspect]
     Route: 048
  3. TENORMIN [Suspect]
     Route: 048

REACTIONS (3)
  - INTERSTITIAL LUNG DISEASE [None]
  - LYMPHOCYTE STIMULATION TEST POSITIVE [None]
  - PULMONARY ALVEOLAR HAEMORRHAGE [None]
